FAERS Safety Report 7818324-4 (Version None)
Quarter: 2011Q4

REPORT INFORMATION
  Report Type: 
  Country: None (occurrence: None)
  Receive Date: 20111017
  Receipt Date: 20111012
  Transmission Date: 20120403
  Serious: Yes (Other)
  Sender: FDA-Public Use
  Company Number: US-PFIZER INC-2011188869

PATIENT
  Sex: Male
  Weight: 95.238 kg

DRUGS (1)
  1. CHANTIX [Suspect]
     Indication: SMOKING CESSATION THERAPY
     Dosage: 0.5 MG, 1X/DAY
     Route: 048
     Dates: start: 20110807, end: 20110816

REACTIONS (2)
  - OCULAR HYPERAEMIA [None]
  - RASH ERYTHEMATOUS [None]
